FAERS Safety Report 6106124-5 (Version None)
Quarter: 2009Q1

REPORT INFORMATION
  Report Type: 
  Country: None (occurrence: None)
  Receive Date: 20090306
  Receipt Date: 20090302
  Transmission Date: 20090719
  Serious: Yes (Hospitalization, Other)
  Sender: FDA-Public Use
  Company Number: PHHY2008MX16671

PATIENT
  Age: 51 Year
  Sex: Female

DRUGS (1)
  1. EXFORGE [Suspect]
     Indication: HYPERTENSION
     Dosage: 2 TABLET (160/5 MG) PER DAY
     Route: 048
     Dates: start: 20050101, end: 20080901

REACTIONS (5)
  - CARDIOMYOPATHY [None]
  - DYSPNOEA [None]
  - OBESITY [None]
  - OEDEMA PERIPHERAL [None]
  - RESPIRATORY FAILURE [None]
